FAERS Safety Report 7630048-5 (Version None)
Quarter: 2011Q3

REPORT INFORMATION
  Report Type: 
  Country: None (occurrence: None)
  Receive Date: 20110722
  Receipt Date: 20110712
  Transmission Date: 20111222
  Serious: Yes (Hospitalization)
  Sender: FDA-Public Use
  Company Number: CA-JNJFOC-20110706339

PATIENT
  Sex: Female
  Weight: 72.3 kg

DRUGS (9)
  1. REMICADE [Suspect]
     Route: 042
     Dates: start: 20070501
  2. FOLIC ACID [Concomitant]
     Dosage: ONE DAILY
  3. ASPIRIN [Concomitant]
  4. NORVASC [Concomitant]
  5. SYNTHROID [Concomitant]
     Dosage: DAILY
  6. A MULTIVITAMIN [Concomitant]
     Indication: VITAMIN SUPPLEMENTATION
     Dosage: DAILY
  7. REMICADE [Suspect]
     Indication: CROHN'S DISEASE
     Route: 042
     Dates: start: 20110712
  8. CALCIUM CARBONATE [Concomitant]
  9. VITAMIN B-12 [Concomitant]

REACTIONS (5)
  - VERTIGO [None]
  - PARAESTHESIA [None]
  - PAIN IN EXTREMITY [None]
  - NAUSEA [None]
  - HEADACHE [None]
